FAERS Safety Report 6491449-4 (Version None)
Quarter: 2009Q4

REPORT INFORMATION
  Report Type: 
  Country: None (occurrence: None)
  Receive Date: 20091211
  Receipt Date: 20091208
  Transmission Date: 20100525
  Serious: Yes (Other)
  Sender: FDA-Public Use
  Company Number: CHPA2009US23234

PATIENT
  Age: 25 Year
  Sex: Male
  Weight: 70.295 kg

DRUGS (1)
  1. 4 WAY FAST ACTING NASAL SPRAY (NCH) [Suspect]
     Indication: NASAL CONGESTION
     Dosage: FREQUENTLY THROUGH OUT THE DAY
     Route: 045

REACTIONS (9)
  - CHOKING [None]
  - CONDITION AGGRAVATED [None]
  - DRUG DEPENDENCE [None]
  - INSOMNIA [None]
  - NASAL CONGESTION [None]
  - NASAL DISCOMFORT [None]
  - RHINALGIA [None]
  - RHINORRHOEA [None]
  - SNEEZING [None]
